FAERS Safety Report 7086185-X (Version None)
Quarter: 2010Q4

REPORT INFORMATION
  Report Type: 
  Country: None (occurrence: None)
  Receive Date: 20101028
  Receipt Date: 20101015
  Transmission Date: 20110411
  Serious: Yes (Other)
  Sender: FDA-Public Use
  Company Number: 2010AP002217

PATIENT
  Age: 56 Year
  Sex: Female

DRUGS (4)
  1. RAMIPRIL [Suspect]
     Dosage: 1.25 MG; PO
     Route: 048
     Dates: start: 20100722, end: 20100803
  2. AMOXICILLIN AND CLAVULANATE POTASSIUM [Concomitant]
  3. LANSOPRAZOLE [Concomitant]
  4. LORATADINE [Concomitant]

REACTIONS (3)
  - DYSPNOEA [None]
  - RASH [None]
  - WHEEZING [None]
